FAERS Safety Report 7780839-5 (Version None)
Quarter: 2011Q3

REPORT INFORMATION
  Report Type: 
  Country: None (occurrence: None)
  Receive Date: 20110927
  Receipt Date: 20110921
  Transmission Date: 20111222
  Serious: No
  Sender: FDA-Public Use
  Company Number: US-PFIZER INC-2011220213

PATIENT
  Sex: Female
  Weight: 51 kg

DRUGS (5)
  1. PREMARIN [Concomitant]
     Dosage: UNK
  2. CELEBREX [Suspect]
     Indication: ARTHRITIS
     Dosage: 100 MG, 2X/DAY
     Route: 048
     Dates: start: 20110614
  3. CELEBREX [Suspect]
     Indication: GASTRITIS
  4. LOVAZA [Concomitant]
     Dosage: UNK
  5. LORTAB [Concomitant]
     Dosage: UNK

REACTIONS (1)
  - HAIR COLOUR CHANGES [None]
